FAERS Safety Report 8038388 (Version 5)
Quarter: 2013Q4

REPORT INFORMATION
  Report Type: Spontaneous
  Country: KR (occurrence: None)
  Receive Date: 20110628
  Receipt Date: 20131007
  Transmission Date: 20140711
  Serious: Yes (Hospitalization)
  Sender: FDA-Public Use
  Company Number: KR-JNJFOC-20110607397

PATIENT
  Age: 47 Year
  Sex: Male
  Weight: 84.5 kg

DRUGS (10)
  1. DECITABINE [Suspect]
     Indication: MYELODYSPLASTIC SYNDROME
     Dosage: 20 MG/M2, INTRAVENOUS
     Route: 042
     Dates: start: 20110516, end: 20110520
  2. CITOPCIN (CIPROFLOXACIN HYDROCHLORIDE) TABLET [Concomitant]
  3. ITRAC 3 (ITRACONAZOLE) [Concomitant]
  4. VIVIR (ACICLOVIR) UNSPECIFIED [Concomitant]
  5. FOLIC ACID [Concomitant]
  6. BEECOM-HEXA (B-KOMPLEX) UNSPECIFIED [Concomitant]
  7. CHLORHEXIDINE (CHLORHEXIDINE) ORAL RINSE [Concomitant]
  8. NYSTATIN (NYSTATIN) ORAL RINSE [Concomitant]
  9. VENITOL (DIOSMIN) TABLET [Concomitant]
  10. LIDOCAINE (LIDOCAINE) GEL [Concomitant]

REACTIONS (3)
  - Proctalgia [None]
  - Febrile neutropenia [None]
  - Anal abscess [None]
